FAERS Safety Report 7728772-9 (Version None)
Quarter: 2011Q3

REPORT INFORMATION
  Report Type: 
  Country: None (occurrence: None)
  Receive Date: 20110906
  Receipt Date: 20110822
  Transmission Date: 20111222
  Serious: No
  Sender: FDA-Public Use
  Company Number: US-ELI_LILLY_AND_COMPANY-US201107005810

PATIENT
  Sex: Female
  Weight: 59.864 kg

DRUGS (11)
  1. COZAAR [Concomitant]
  2. MULTIVITAMIN [Concomitant]
  3. SOTALOL HYDROCHLORIDE [Concomitant]
  4. ACTONEL [Concomitant]
  5. FORTEO [Suspect]
     Indication: OSTEOPOROSIS
     Dosage: UNK, UNKNOWN
     Route: 065
     Dates: start: 20100920
  6. ASPIRIN [Concomitant]
  7. MELOXICAM [Concomitant]
  8. OMEPRAZOLE [Concomitant]
  9. LASIX [Concomitant]
  10. PLAVIX [Concomitant]
  11. SIMVASTATIN [Concomitant]

REACTIONS (1)
  - NO ADVERSE EVENT [None]
